FAERS Safety Report 7689800-2 (Version None)
Quarter: 2011Q3

REPORT INFORMATION
  Report Type: 
  Country: None (occurrence: None)
  Receive Date: 20110818
  Receipt Date: 20110810
  Transmission Date: 20111222
  Serious: Yes (Other)
  Sender: FDA-Public Use
  Company Number: AU-BRISTOL-MYERS SQUIBB COMPANY-15959117

PATIENT
  Sex: Female

DRUGS (1)
  1. AVAPRO [Suspect]

REACTIONS (6)
  - GASTROOESOPHAGEAL REFLUX DISEASE [None]
  - CHOKING [None]
  - CHEST DISCOMFORT [None]
  - VOMITING [None]
  - COUGH [None]
  - DYSPNOEA [None]
